FAERS Safety Report 7026378-0 (Version None)
Quarter: 2010Q4

REPORT INFORMATION
  Report Type: 
  Country: None (occurrence: None)
  Receive Date: 20101004
  Receipt Date: 20100929
  Transmission Date: 20110411
  Serious: Yes (Hospitalization)
  Sender: FDA-Public Use
  Company Number: US-PFIZER INC-2010124318

PATIENT
  Sex: Male
  Weight: 77 kg

DRUGS (1)
  1. AMLODIPINE BESYLATE [Suspect]
     Indication: HYPERTENSION
     Dosage: 10 MG, 1X/DAY
     Dates: end: 20100901

REACTIONS (4)
  - FOOD INTOLERANCE [None]
  - GALLBLADDER OPERATION [None]
  - HYPOTENSION [None]
  - SKIN REACTION [None]
